FAERS Safety Report 18366275 (Version 1)
Quarter: 2020Q4

REPORT INFORMATION
  Report Type: Spontaneous
  Country: US (occurrence: US)
  Receive Date: 20201009
  Receipt Date: 20201009
  Transmission Date: 20210114
  Serious: Yes (Hospitalization)
  Sender: FDA-Public Use
  Company Number: US-MYLANLABS-2020M1084979

PATIENT
  Age: 73 Year
  Sex: Male

DRUGS (10)
  1. FENTANYL. [Suspect]
     Active Substance: FENTANYL
     Indication: PAIN IN EXTREMITY
     Dosage: 25 MICROGRAM
     Route: 065
  2. HYDROCODONE [Suspect]
     Active Substance: HYDROCODONE
     Dosage: 7.5 MILLIGRAM, QID
     Route: 065
  3. HYDROCODONE [Suspect]
     Active Substance: HYDROCODONE
     Dosage: 10 MILLIGRAM 1-2 TIMES DAILY.
     Route: 065
  4. BUPRENORPHINE. [Suspect]
     Active Substance: BUPRENORPHINE
     Indication: DRUG WITHDRAWAL SYNDROME
     Dosage: 4 MILLIGRAM
     Route: 065
  5. HYDROCODONE [Suspect]
     Active Substance: HYDROCODONE
     Indication: PAIN
     Dosage: 5 MILLIGRAM, QID
     Route: 065
  6. FENTANYL. [Suspect]
     Active Substance: FENTANYL
     Dosage: 12 MICROGRAM, Q3D
     Route: 065
  7. BUPRENORPHINE. [Suspect]
     Active Substance: BUPRENORPHINE
     Indication: DRUG WITHDRAWAL SYNDROME
     Dosage: 2 MILLIGRAM
     Route: 060
  8. FENTANYL. [Suspect]
     Active Substance: FENTANYL
     Dosage: 37 MICROGRAM
     Route: 065
  9. FENTANYL. [Suspect]
     Active Substance: FENTANYL
     Dosage: 50 MICROGRAM
     Route: 065
  10. HYDROCODONE [Suspect]
     Active Substance: HYDROCODONE
     Dosage: 10 MILLIGRAM, QID
     Route: 065

REACTIONS (12)
  - Insomnia [Recovered/Resolved]
  - Restless legs syndrome [Recovered/Resolved]
  - Hypotension [Recovered/Resolved]
  - Haemodynamic instability [Recovered/Resolved]
  - Dizziness [Recovered/Resolved]
  - Drug withdrawal syndrome [Recovered/Resolved]
  - Depressed level of consciousness [Recovered/Resolved]
  - Anxiety [Recovered/Resolved]
  - Pain [Recovered/Resolved]
  - Bradycardia [Recovered/Resolved]
  - Drug use disorder [Recovered/Resolved]
  - Respiratory depression [Recovered/Resolved]
